FAERS Safety Report 25971803 (Version 2)
Quarter: 2025Q4

REPORT INFORMATION
  Report Type: Spontaneous
  Country: US (occurrence: US)
  Receive Date: 20251029
  Receipt Date: 20251216
  Transmission Date: 20260118
  Serious: Yes (Hospitalization)
  Sender: HISAMITSU PHARMACEUTICAL CO., INC.
  Company Number: US-HISAMITSU PHARMACEUTICAL CO., INC.-2025-NOV-US001820

PATIENT
  Sex: Female
  Weight: 99.773 kg

DRUGS (2)
  1. SECUADO [Suspect]
     Active Substance: ASENAPINE
     Indication: Bipolar disorder
     Dosage: 3.8 MG, UNKNOWN
     Route: 062
     Dates: start: 2025
  2. SECUADO [Suspect]
     Active Substance: ASENAPINE
     Indication: Schizophrenia
     Dosage: 3.8 MG, UNKNOWN
     Route: 062
     Dates: start: 202506, end: 2025

REACTIONS (4)
  - Suicide attempt [Recovered/Resolved]
  - Application site laceration [Not Recovered/Not Resolved]
  - Application site erythema [Not Recovered/Not Resolved]
  - Application site discomfort [Not Recovered/Not Resolved]

NARRATIVE: CASE EVENT DATE: 20250101
